FAERS Safety Report 21053311 (Version 1)
Quarter: 2022Q3

REPORT INFORMATION
  Report Type: Spontaneous
  Country: IT (occurrence: IT)
  Receive Date: 20220707
  Receipt Date: 20220707
  Transmission Date: 20221027
  Serious: Yes (Other)
  Sender: FDA-Public Use
  Company Number: IT-SA-SAC20220706000303

PATIENT
  Age: 27 Year
  Sex: Male

DRUGS (1)
  1. DUPIXENT [Suspect]
     Active Substance: DUPILUMAB
     Indication: Dermatitis atopic
     Dosage: UNK
     Dates: start: 202011, end: 202203

REACTIONS (3)
  - Diffuse large B-cell lymphoma [Unknown]
  - Mediastinal mass [Unknown]
  - Asthma [Unknown]

NARRATIVE: CASE EVENT DATE: 20220301
